FAERS Safety Report 7277772-4 (Version None)
Quarter: 2011Q1

REPORT INFORMATION
  Report Type: 
  Country: None (occurrence: None)
  Receive Date: 20110207
  Receipt Date: 20100622
  Transmission Date: 20110831
  Serious: No
  Sender: FDA-Public Use
  Company Number: A0866566A

PATIENT
  Age: 81 Year
  Sex: Male

DRUGS (7)
  1. OLUX [Suspect]
     Route: 061
     Dates: start: 20100615, end: 20100622
  2. NADOLOL [Concomitant]
  3. NIACIN [Concomitant]
  4. LIPITOR [Concomitant]
  5. NIFEDIPINE [Concomitant]
  6. METFORMIN [Concomitant]
  7. HYZAAR [Concomitant]

REACTIONS (3)
  - APPLICATION SITE PAIN [None]
  - APPLICATION SITE ERYTHEMA [None]
  - APPLICATION SITE PRURITUS [None]
